FAERS Safety Report 9894126 (Version 1)
Quarter: 2014Q1

REPORT INFORMATION
  Report Type: Spontaneous
  Country: US (occurrence: US)
  Receive Date: 20140213
  Receipt Date: 20140213
  Transmission Date: 20141002
  Serious: No
  Sender: FDA-Public Use
  Company Number: US-PFIZER INC-2014040236

PATIENT
  Sex: Female

DRUGS (6)
  1. DILANTIN [Suspect]
     Dosage: UNK
  2. GEODON [Suspect]
     Dosage: UNK
  3. PENICILLIN G SODIUM [Suspect]
     Dosage: UNK
  4. RISPERDAL [Suspect]
     Dosage: UNK
  5. TEGRETOL [Suspect]
     Dosage: UNK
  6. ABILIFY [Suspect]
     Dosage: UNK

REACTIONS (1)
  - Drug hypersensitivity [Unknown]
